FAERS Safety Report 6056479-5 (Version None)
Quarter: 2009Q1

REPORT INFORMATION
  Report Type: 
  Country: None (occurrence: None)
  Receive Date: 20090129
  Receipt Date: 20090116
  Transmission Date: 20090719
  Serious: Yes (Other)
  Sender: FDA-Public Use
  Company Number: PHEH2009US01084

PATIENT
  Sex: Female

DRUGS (3)
  1. NEORAL [Suspect]
     Dosage: 75 MG, BID
     Route: 048
     Dates: end: 20090102
  2. COREG [Concomitant]
     Indication: CARDIAC FAILURE CONGESTIVE
     Dosage: 1 DF, BID
  3. CELLCEPT [Concomitant]

REACTIONS (4)
  - ANXIETY [None]
  - DYSPNOEA [None]
  - FLUID RETENTION [None]
  - TREMOR [None]
